FAERS Safety Report 4585542-0 (Version None)
Quarter: 2005Q1

REPORT INFORMATION
  Report Type: 
  Country: None (occurrence: None)
  Receive Date: 20050214
  Receipt Date: 20051007
  Transmission Date: 20050727
  Serious: Yes (Hospitalization)
  Sender: FDA-Public Use
  Company Number: 05-090

PATIENT
  Age: 55 Year
  Sex: Male

DRUGS (6)
  1. DEXAMETHASONE [Suspect]
     Indication: MULTIPLE MYELOMA
     Dosage: 40 MG/DAY, ORAL
     Route: 048
     Dates: start: 20030213, end: 20030608
  2. TRIMETHOPRIM-SULFAMETHOXAZOLE [Concomitant]
  3. RANITIDINE [Concomitant]
  4. HYDROCODONE WITH ACETAMINOPHEN [Concomitant]
  5. MORPHINE SULFATE [Concomitant]
  6. NEUPOGEN [Concomitant]

REACTIONS (3)
  - BRONCHITIS [None]
  - PHARYNGOLARYNGEAL PAIN [None]
  - PNEUMONIA [None]
